FAERS Safety Report 14186451 (Version 2)
Quarter: 2017Q4

REPORT INFORMATION
  Report Type: Spontaneous
  Country: US (occurrence: US)
  Receive Date: 20171114
  Receipt Date: 20171205
  Transmission Date: 20180321
  Serious: Yes (Other)
  Sender: FDA-Public Use
  Company Number: US-PFIZER INC-2017484001

PATIENT
  Age: 73 Year
  Sex: Female
  Weight: 56.7 kg

DRUGS (6)
  1. ATENOLOL. [Concomitant]
     Active Substance: ATENOLOL
     Indication: BLOOD PRESSURE ABNORMAL
     Dosage: 50MG TABLET BY MOUTH ONCE A DAY
     Route: 048
  2. HYDROCHLOROTHIAZIDE. [Concomitant]
     Active Substance: HYDROCHLOROTHIAZIDE
     Indication: BLOOD PRESSURE ABNORMAL
     Dosage: 25MG TABLET ONCE A DAY BY MOUTH
     Route: 048
  3. LYRICA [Suspect]
     Active Substance: PREGABALIN
     Indication: FIBROMYALGIA
     Dosage: 75MG CAPSULE BY MOUTH TWICE A DAY
     Route: 048
     Dates: start: 2016
  4. LEVOTHYROXINE. [Concomitant]
     Active Substance: LEVOTHYROXINE
     Indication: THYROID DISORDER
     Dosage: 0.075MCG TABLET BY MOUTH ONCE A DAY
     Route: 048
  5. CARBIDOPA LEVODOPA [Concomitant]
     Active Substance: CARBIDOPA\LEVODOPA
     Indication: RESTLESS LEGS SYNDROME
     Dosage: [CARBIDOPA 25MG]/[LEVODOPA 250 MG], 25-250MG TABLET BY MOUTH THREE TIMES A DAY
     Route: 048
  6. OMEPRAZOLE. [Concomitant]
     Active Substance: OMEPRAZOLE
     Indication: ULCER
     Dosage: 20MG CAPSULE BY MOUTH TWICE A DAY
     Route: 048

REACTIONS (6)
  - Heart rate irregular [Not Recovered/Not Resolved]
  - Asthenia [Unknown]
  - Coronary artery thrombosis [Unknown]
  - Cerebrovascular accident [Recovered/Resolved with Sequelae]
  - Cardiomegaly [Not Recovered/Not Resolved]
  - Fatigue [Unknown]

NARRATIVE: CASE EVENT DATE: 201705
